FAERS Safety Report 6665357-X (Version None)
Quarter: 2010Q1

REPORT INFORMATION
  Report Type: 
  Country: None (occurrence: None)
  Receive Date: 20100331
  Receipt Date: 20100319
  Transmission Date: 20100710
  Serious: Yes (Hospitalization)
  Sender: FDA-Public Use
  Company Number: 007965

PATIENT
  Sex: Female
  Weight: 47.7 kg

DRUGS (8)
  1. CERTOLIZUMAB PEGOL [Suspect]
     Indication: RHEUMATOID ARTHRITIS
     Dosage: (SUBCUTANEOUS)
     Route: 058
     Dates: start: 20090923, end: 20100210
  2. METHOTREXATE [Concomitant]
  3. SULFASALAZINE [Concomitant]
  4. FOLIC ACID [Concomitant]
  5. PREDNISONE [Concomitant]
  6. OMEPRAZOLE [Concomitant]
  7. TESSALON [Concomitant]
  8. LEVOFLOXACIN [Concomitant]

REACTIONS (7)
  - BRONCHITIS [None]
  - COUGH [None]
  - DECREASED APPETITE [None]
  - DYSPHAGIA [None]
  - GASTROOESOPHAGEAL REFLUX DISEASE [None]
  - SMALL CELL LUNG CANCER METASTATIC [None]
  - WEIGHT DECREASED [None]
